FAERS Safety Report 5771975-3 (Version None)
Quarter: 2008Q2

REPORT INFORMATION
  Report Type: 
  Country: None (occurrence: None)
  Receive Date: 20080601
  Receipt Date: 20080307
  Transmission Date: 20081010
  Serious: No
  Sender: FDA-Public Use
  Company Number: US200803001890

PATIENT
  Age: 61 Year
  Sex: Female
  Weight: 81.6 kg

DRUGS (9)
  1. BYETTA [Suspect]
     Indication: TYPE 2 DIABETES MELLITUS
     Dosage: 5 UG, 2/D, SUBCUTANEOUS ; 10 UG, 2/D, SUBCUTANEOUS
     Route: 058
     Dates: start: 20060320, end: 20060419
  2. BYETTA [Suspect]
     Indication: TYPE 2 DIABETES MELLITUS
     Dosage: 5 UG, 2/D, SUBCUTANEOUS ; 10 UG, 2/D, SUBCUTANEOUS
     Route: 058
     Dates: start: 20060420, end: 20070101
  3. SYNTHROID [Concomitant]
  4. PREMARIN (ESTROGENS CONJUGATED, MEDROGESTONE) [Concomitant]
  5. CYMBALTA [Concomitant]
  6. DARVOCET [Concomitant]
  7. NEXIUM (ESOMEOPRAZOLE MAGNESIUM) [Concomitant]
  8. METFORMIN HCL [Concomitant]
  9. LEVEMIR (INSULIN DETEMIR) [Concomitant]

REACTIONS (2)
  - GASTRIC ULCER HAEMORRHAGE [None]
  - HAEMATOCHEZIA [None]
